FAERS Safety Report 9272280 (Version 1)
Quarter: 2013Q2

REPORT INFORMATION
  Report Type: Spontaneous
  Country: US (occurrence: US)
  Receive Date: 20130506
  Receipt Date: 20130506
  Transmission Date: 20140414
  Serious: No
  Sender: FDA-Public Use
  Company Number: US-ASTRAZENECA-2013SE11620

PATIENT
  Sex: Female

DRUGS (4)
  1. PRILOSEC OTC [Suspect]
     Route: 048
     Dates: start: 20130210
  2. WARFARIN [Interacting]
     Route: 048
  3. ALL OTHER THERAPEUTIC PRODUCTS [Concomitant]
  4. DAYQUIL [Concomitant]

REACTIONS (3)
  - Glossodynia [Recovering/Resolving]
  - Tongue discolouration [Recovering/Resolving]
  - Labelled drug-drug interaction medication error [Unknown]
